FAERS Safety Report 11829892 (Version 2)
Quarter: 2015Q4

REPORT INFORMATION
  Report Type: Spontaneous
  Country: JP (occurrence: JP)
  Receive Date: 20151212
  Receipt Date: 20151231
  Transmission Date: 20160305
  Serious: Yes (Death, Life-Threatening, Other)
  Sender: FDA-Public Use
  Company Number: US-ASTRAZENECA-2015SF24604

PATIENT
  Age: 3 Month
  Sex: Female
  Weight: 5.5 kg

DRUGS (3)
  1. PNEUMOCOCCAL POLYSACCHARIDE VACCINE [Concomitant]
     Active Substance: PNEUMOCOCCAL VACCINE POLYVALENT
     Indication: IMMUNISATION
     Route: 058
     Dates: start: 20151015, end: 20151120
  2. SYNAGIS [Suspect]
     Active Substance: PALIVIZUMAB
     Indication: PREMATURE BABY
     Route: 030
     Dates: start: 201509, end: 20151204
  3. HAEMOPHILUS INFLUENZAE TYPE B POLYSACCHARIDE [Concomitant]
     Indication: IMMUNISATION
     Route: 058
     Dates: start: 20151015, end: 20151120

REACTIONS (2)
  - Cardio-respiratory arrest [Unknown]
  - Sudden infant death syndrome [Fatal]

NARRATIVE: CASE EVENT DATE: 20151205
